FAERS Safety Report 12496032 (Version 1)
Quarter: 2016Q2

REPORT INFORMATION
  Report Type: Spontaneous
  Country: US (occurrence: US)
  Receive Date: 20160624
  Receipt Date: 20160624
  Transmission Date: 20160815
  Serious: No
  Sender: FDA-Public Use
  Company Number: US-BAUSCH-BL-2016-006999

PATIENT
  Age: 59 Year
  Sex: Female
  Weight: 55.84 kg

DRUGS (5)
  1. JUBLIA [Suspect]
     Active Substance: EFINACONAZOLE
     Indication: ONYCHOMYCOSIS
     Dosage: 1 APPLICATION TO THE 2 BIG TOES OF BOTH FEET AND THE SECOND TOENAIL OF THE RIGHT FOOT ONCE DAILY
     Route: 061
     Dates: start: 201510
  2. NITROSPRAY [Concomitant]
     Indication: MICROVASCULAR CORONARY ARTERY DISEASE
     Route: 060
     Dates: start: 201501
  3. RANEXA [Concomitant]
     Active Substance: RANOLAZINE
     Indication: MICROVASCULAR CORONARY ARTERY DISEASE
     Route: 048
     Dates: start: 201501
  4. DILTIAZEM [Concomitant]
     Active Substance: DILTIAZEM
     Indication: MICROVASCULAR CORONARY ARTERY DISEASE
     Route: 048
     Dates: start: 201508
  5. WARFARIN [Concomitant]
     Active Substance: WARFARIN
     Indication: MICROVASCULAR CORONARY ARTERY DISEASE
     Route: 048
     Dates: start: 201208

REACTIONS (5)
  - Nail discolouration [Not Recovered/Not Resolved]
  - Nail disorder [Not Recovered/Not Resolved]
  - Drug ineffective [Unknown]
  - Onychomycosis [Not Recovered/Not Resolved]
  - Condition aggravated [Not Recovered/Not Resolved]

NARRATIVE: CASE EVENT DATE: 2016
